FAERS Safety Report 15397429 (Version 1)
Quarter: 2018Q3

REPORT INFORMATION
  Report Type: Spontaneous
  Country: CN (occurrence: CN)
  Receive Date: 20180918
  Receipt Date: 20180918
  Transmission Date: 20181010
  Serious: Yes (Other)
  Sender: FDA-Public Use
  Company Number: PHHY2018CN100793

PATIENT
  Age: 63 Year
  Sex: Male

DRUGS (1)
  1. IMATINIB [Suspect]
     Active Substance: IMATINIB
     Indication: PRODUCT USED FOR UNKNOWN INDICATION
     Dosage: 400 MG, UNK
     Route: 065
     Dates: start: 20130623, end: 20180912

REACTIONS (5)
  - Insomnia [Unknown]
  - Haemoglobin decreased [Unknown]
  - Pallor [Unknown]
  - Cachexia [Unknown]
  - Red blood cell count decreased [Unknown]
